FAERS Safety Report 11751064 (Version 3)
Quarter: 2015Q4

REPORT INFORMATION
  Report Type: Spontaneous
  Country: MX (occurrence: MX)
  Receive Date: 20151118
  Receipt Date: 20151204
  Transmission Date: 20160304
  Serious: Yes (Death, Other)
  Sender: FDA-Public Use
  Company Number: MX-BAYER-2015-470572

PATIENT
  Age: 25 Year
  Sex: Female

DRUGS (1)
  1. ULTRAVIST [Suspect]
     Active Substance: IOPROMIDE
     Indication: SCAN WITH CONTRAST
     Dosage: 40 ML, ONCE
     Route: 042
     Dates: start: 20151110, end: 20151110

REACTIONS (14)
  - Haemoptysis [None]
  - Productive cough [Not Recovered/Not Resolved]
  - Acute pulmonary oedema [Fatal]
  - Eyelid oedema [None]
  - Tongue oedema [None]
  - Laryngeal oedema [None]
  - Chest pain [None]
  - Pharyngeal oedema [None]
  - Angioedema [None]
  - Angioedema [Fatal]
  - Face oedema [None]
  - Anaphylactic shock [Fatal]
  - Dyspnoea [None]
  - Cellulitis [Fatal]

NARRATIVE: CASE EVENT DATE: 20151110
